FAERS Safety Report 8194063-8 (Version None)
Quarter: 2012Q1

REPORT INFORMATION
  Report Type: 
  Country: None (occurrence: None)
  Receive Date: 20120308
  Receipt Date: 20120305
  Transmission Date: 20120608
  Serious: Yes (Other)
  Sender: FDA-Public Use
  Company Number: DE-MERCK-1202DEU00095

PATIENT
  Age: 3 Year
  Sex: Male

DRUGS (4)
  1. ALBUTEROL [Concomitant]
     Route: 055
  2. SINGULAIR [Suspect]
     Route: 048
  3. FLUTICASONE [Concomitant]
     Route: 055
  4. CETIRIZINE HYDROCHLORIDE [Suspect]
     Route: 048

REACTIONS (1)
  - TYPE 1 DIABETES MELLITUS [None]
